FAERS Safety Report 9554469 (Version 3)
Quarter: 2013Q4

REPORT INFORMATION
  Report Type: Spontaneous
  Country: FR (occurrence: FR)
  Receive Date: 20130925
  Receipt Date: 20131216
  Transmission Date: 20140711
  Serious: Yes (Hospitalization, Other)
  Sender: FDA-Public Use
  Company Number: FR-CELGENEUS-056-50794-13092290

PATIENT
  Age: 69 Year
  Sex: Female

DRUGS (6)
  1. VIDAZA [Suspect]
     Indication: CHRONIC MYELOID LEUKAEMIA
     Dosage: 115 MILLIGRAM
     Route: 058
     Dates: start: 20110524
  2. VIDAZA [Suspect]
     Dosage: 115 MILLIGRAM
     Route: 058
     Dates: start: 20130903, end: 20130906
  3. VIDAZA [Suspect]
     Dosage: 115 MILLIGRAM
     Route: 058
     Dates: start: 20131008
  4. VIDAZA [Suspect]
     Dosage: 115 MILLIGRAM
     Route: 058
     Dates: start: 20131112
  5. DOLIPRANE [Concomitant]
     Indication: PRODUCT USED FOR UNKNOWN INDICATION
     Route: 065
  6. RETACRIT [Concomitant]
     Indication: ANAEMIA
     Dosage: 3000
     Route: 065

REACTIONS (6)
  - Confusional state [Recovered/Resolved]
  - Loss of consciousness [Recovered/Resolved]
  - Tongue biting [Recovered/Resolved]
  - Malaise [Recovered/Resolved]
  - Malaise [Recovered/Resolved]
  - Sensory loss [Recovered/Resolved]
